FAERS Safety Report 15859573 (Version 2)
Quarter: 2019Q1

REPORT INFORMATION
  Report Type: Report from Study
  Country: DE (occurrence: DE)
  Receive Date: 20190123
  Receipt Date: 20190319
  Transmission Date: 20190417
  Serious: Yes (Hospitalization)
  Sender: FDA-Public Use
  Company Number: DE-MYLANLABS-2018M1053328

PATIENT
  Age: 75 Year
  Sex: Male
  Weight: 81.5 kg

DRUGS (31)
  1. CLOPIDOGREL [Concomitant]
     Active Substance: CLOPIDOGREL BISULFATE
     Indication: CORONARY ARTERY DISEASE
     Dosage: 75 MG, QD,1-0-0-0
     Route: 065
  2. REPAGLINIDE. [Concomitant]
     Active Substance: REPAGLINIDE
     Indication: DIABETES MELLITUS
     Dosage: 2 MILLIGRAM, TID
     Route: 048
     Dates: start: 20080610, end: 20080627
  3. ERYPO                              /00928302/ [Suspect]
     Active Substance: ERYTHROPOIETIN
     Indication: ANAEMIA
     Dosage: 6000 INTERNATIONAL UNIT, QW
     Route: 058
     Dates: start: 20080626, end: 20080701
  4. FUROSEMIDE. [Concomitant]
     Active Substance: FUROSEMIDE
     Indication: PRODUCT USED FOR UNKNOWN INDICATION
     Dosage: 40 MG, BID, 1-1-0-0
     Route: 048
     Dates: start: 20080610, end: 20080626
  5. MIFLONIDE [Concomitant]
     Active Substance: BUDESONIDE
     Indication: PRODUCT USED FOR UNKNOWN INDICATION
     Dosage: 400 ?G, UNK
  6. ASPIRIN. [Concomitant]
     Active Substance: ASPIRIN
     Dosage: 300 MILLIGRAM, QD
     Route: 048
     Dates: start: 20080610
  7. RAMIPRIL. [Concomitant]
     Active Substance: RAMIPRIL
     Indication: PRODUCT USED FOR UNKNOWN INDICATION
     Dosage: 2.5 MG, 0.5-0-0.5-0
  8. OMEPRAZOLE. [Concomitant]
     Active Substance: OMEPRAZOLE
     Indication: PRODUCT USED FOR UNKNOWN INDICATION
     Dosage: 20 MILLIGRAM, QD
     Route: 048
     Dates: start: 20080610
  9. ERYPO                              /00928302/ [Suspect]
     Active Substance: ERYTHROPOIETIN
     Dosage: 6000 INTERNATIONAL UNIT, QW
     Route: 058
     Dates: start: 20080715
  10. LONOLOX [Concomitant]
     Active Substance: MINOXIDIL
     Dosage: 50 MILLIGRAM, TID
     Route: 048
     Dates: start: 20080611, end: 20080729
  11. LONOLOX [Concomitant]
     Active Substance: MINOXIDIL
     Dosage: 100 MILLIGRAM, QD
     Route: 048
     Dates: start: 20080610, end: 20080611
  12. METOHEXAL                          /00376902/ [Concomitant]
     Active Substance: METOPROLOL SUCCINATE
     Indication: PRODUCT USED FOR UNKNOWN INDICATION
     Dosage: 95 MILLIGRAM, BID
     Route: 048
     Dates: start: 20080610
  13. FUROSEMIDE. [Concomitant]
     Active Substance: FUROSEMIDE
     Dosage: 40 MG, BID
     Route: 048
  14. FUROSEMIDE. [Concomitant]
     Active Substance: FUROSEMIDE
     Dosage: 125 MG, BID
     Route: 048
     Dates: start: 20080610, end: 20080626
  15. ULTIBRO BREEZHALER [Concomitant]
     Active Substance: GLYCOPYRRONIUM\INDACATEROL
     Indication: PRODUCT USED FOR UNKNOWN INDICATION
     Dosage: 85|43 ?G, NK
  16. ALLOPURINOL. [Concomitant]
     Active Substance: ALLOPURINOL
     Indication: PRODUCT USED FOR UNKNOWN INDICATION
     Dosage: 100 MG, QD,1-0-0-0
  17. ACTRAPHANE HM [Concomitant]
     Active Substance: INSULIN HUMAN
     Indication: DIABETES MELLITUS
     Dosage: 24-0-10 IU, (30/70) DAILY
     Route: 058
     Dates: start: 20080628, end: 20080704
  18. ACTRAPHANE HM [Concomitant]
     Active Substance: INSULIN HUMAN
     Dosage: 36-0-18 IU, (30/70) DAILY
     Route: 058
     Dates: start: 20080610, end: 20080627
  19. REPAGLINIDE. [Concomitant]
     Active Substance: REPAGLINIDE
     Dosage: 3 MILLIGRAM, QD
     Route: 048
     Dates: start: 20080628, end: 20080704
  20. SIMVASTATIN. [Concomitant]
     Active Substance: SIMVASTATIN
     Indication: PRODUCT USED FOR UNKNOWN INDICATION
     Dosage: 40 MILLIGRAM, QD
     Route: 048
     Dates: start: 20080610
  21. METFORMIN [Suspect]
     Active Substance: METFORMIN HYDROCHLORIDE
     Indication: PRODUCT USED FOR UNKNOWN INDICATION
     Dosage: 1000 MG, BID, 1-0-0-1
     Route: 065
  22. MOVICOL [Concomitant]
     Active Substance: POLYETHYLENE GLYCOL 3350\POTASSIUM CHLORIDE\SODIUM BICARBONATE\SODIUM CHLORIDE
     Indication: PRODUCT USED FOR UNKNOWN INDICATION
     Dosage: UNK, QD,1-0-0-0
  23. PRADAXA [Concomitant]
     Active Substance: DABIGATRAN ETEXILATE MESYLATE
     Indication: PRODUCT USED FOR UNKNOWN INDICATION
     Dosage: 110 MG, BID,1-0-0-1
  24. ALLOPURINOL. [Concomitant]
     Active Substance: ALLOPURINOL
     Dosage: 100 MG, QD
     Dates: start: 20080610
  25. PANTOPRAZOL                        /01263201/ [Concomitant]
     Active Substance: PANTOPRAZOLE
     Indication: PRODUCT USED FOR UNKNOWN INDICATION
     Dosage: 40 MG, QD, 1-0-0-0
  26. TORASEMIDE [Concomitant]
     Active Substance: TORSEMIDE
     Indication: PRODUCT USED FOR UNKNOWN INDICATION
     Dosage: 200 MILLIGRAM, QD
     Dates: start: 20080626
  27. ASPIRINE [Concomitant]
     Active Substance: ASPIRIN
     Indication: PRODUCT USED FOR UNKNOWN INDICATION
     Dosage: 300 MILLIGRAM, QD
     Route: 048
     Dates: start: 20080610
  28. GLIMEPIRIDE. [Suspect]
     Active Substance: GLIMEPIRIDE
     Indication: PRODUCT USED FOR UNKNOWN INDICATION
     Dosage: 1 MG, TID,1-1-0-1
     Route: 065
  29. ASPIRIN. [Concomitant]
     Active Substance: ASPIRIN
     Indication: PRODUCT USED FOR UNKNOWN INDICATION
     Dosage: 100 MG, QD,1-0-0-0
  30. TAMSULOSIN [Concomitant]
     Active Substance: TAMSULOSIN
     Indication: PRODUCT USED FOR UNKNOWN INDICATION
     Dosage: 0.4 MG, QD,1-0-0-0
  31. RAMIPRIL. [Concomitant]
     Active Substance: RAMIPRIL
     Dosage: 2.5 MILLIGRAM, BID
     Route: 048
     Dates: start: 20080610

REACTIONS (8)
  - Hypoglycaemia [Recovered/Resolved]
  - Blood glucose decreased [Recovered/Resolved]
  - Haematoma [Recovered/Resolved]
  - Anaemia [Recovered/Resolved]
  - Dizziness [Unknown]
  - Syncope [Recovered/Resolved]
  - Hypotension [Recovered/Resolved]
  - Fall [Recovered/Resolved]

NARRATIVE: CASE EVENT DATE: 20080627
